FAERS Safety Report 26063349 (Version 1)
Quarter: 2025Q4

REPORT INFORMATION
  Report Type: Spontaneous
  Country: US (occurrence: US)
  Receive Date: 20251119
  Receipt Date: 20251119
  Transmission Date: 20260117
  Serious: No
  Sender: MERCK SHARP & DOHME LLC
  Company Number: US-009507513-2346273

PATIENT
  Age: 47 Year
  Sex: Male

DRUGS (2)
  1. PEMBROLIZUMAB [Suspect]
     Active Substance: PEMBROLIZUMAB
     Indication: Lung squamous cell carcinoma stage IV
     Route: 065
  2. DUPILUMAB [Concomitant]
     Active Substance: DUPILUMAB

REACTIONS (2)
  - Dermatitis atopic [Recovering/Resolving]
  - Drug ineffective [Unknown]
